FAERS Safety Report 25369845 (Version 1)
Quarter: 2025Q2

REPORT INFORMATION
  Report Type: Report from Study
  Country: PL (occurrence: PL)
  Receive Date: 20250528
  Receipt Date: 20250528
  Transmission Date: 20250717
  Serious: Yes (Other)
  Sender: UCB
  Company Number: PL-UCBSA-2025030593

PATIENT

DRUGS (12)
  1. BRIVARACETAM [Suspect]
     Active Substance: BRIVARACETAM
     Indication: Epilepsy
  2. LEVETIRACETAM [Suspect]
     Active Substance: LEVETIRACETAM
     Indication: Epilepsy
  3. LACOSAMIDE [Suspect]
     Active Substance: LACOSAMIDE
     Indication: Epilepsy
  4. LAMOTRIGINE [Suspect]
     Active Substance: LAMOTRIGINE
     Indication: Epilepsy
  5. VALPROIC ACID [Suspect]
     Active Substance: VALPROIC ACID
     Indication: Epilepsy
  6. TOPIRAMATE [Suspect]
     Active Substance: TOPIRAMATE
     Indication: Epilepsy
  7. CLOBAZAM [Suspect]
     Active Substance: CLOBAZAM
     Indication: Epilepsy
  8. OXCARBAZEPINE [Suspect]
     Active Substance: OXCARBAZEPINE
     Indication: Epilepsy
  9. CARBAMAZEPINE [Suspect]
     Active Substance: CARBAMAZEPINE
     Indication: Epilepsy
  10. PREGABALIN [Suspect]
     Active Substance: PREGABALIN
     Indication: Epilepsy
  11. GABAPENTIN [Suspect]
     Active Substance: GABAPENTIN
     Indication: Epilepsy
  12. CENOBAMATE [Suspect]
     Active Substance: CENOBAMATE
     Indication: Epilepsy

REACTIONS (11)
  - Seizure [Unknown]
  - Somnolence [Unknown]
  - Dizziness [Unknown]
  - Balance disorder [Unknown]
  - Fatigue [Unknown]
  - Diplopia [Unknown]
  - Vision blurred [Unknown]
  - Headache [Unknown]
  - Aggression [Unknown]
  - Gastrointestinal disorder [Unknown]
  - Irritability [Unknown]
